FAERS Safety Report 13509807 (Version 2)
Quarter: 2017Q4

REPORT INFORMATION
  Report Type: Spontaneous
  Country: US (occurrence: US)
  Receive Date: 20170503
  Receipt Date: 20171102
  Transmission Date: 20180320
  Serious: No
  Sender: FDA-Public Use
  Company Number: US-SA-2017SA043985

PATIENT
  Age: 69 Year
  Sex: Male
  Weight: 136.06 kg

DRUGS (3)
  1. ALIROCUMAB PREFILLED PEN [Suspect]
     Active Substance: ALIROCUMAB
     Indication: HYPERLIPIDAEMIA
     Dates: start: 20170113, end: 20170127
  2. PRALUENT [Suspect]
     Active Substance: ALIROCUMAB
     Indication: HYPERLIPIDAEMIA
     Route: 058
     Dates: start: 20170113, end: 20170127
  3. REPATHA [Concomitant]
     Active Substance: EVOLOCUMAB
     Dates: start: 201610

REACTIONS (1)
  - Drug ineffective [Unknown]

NARRATIVE: CASE EVENT DATE: 20170228
